FAERS Safety Report 9452339 (Version 1)
Quarter: 2013Q3

REPORT INFORMATION
  Report Type: Spontaneous
  Country: US (occurrence: None)
  Receive Date: 20130808
  Receipt Date: 20130808
  Transmission Date: 20140515
  Serious: Yes (Other)
  Sender: FDA-Public Use
  Company Number: None

PATIENT
  Age: 54 Year
  Sex: Male
  Weight: 127 kg

DRUGS (1)
  1. DEFINITY [Suspect]
     Indication: SCAN WITH CONTRAST
     Route: 042
     Dates: start: 20130807, end: 20130807

REACTIONS (1)
  - Back pain [None]
